FAERS Safety Report 18900637 (Version 1)
Quarter: 2021Q1

REPORT INFORMATION
  Report Type: Spontaneous
  Country: US (occurrence: US)
  Receive Date: 20210216
  Receipt Date: 20210216
  Transmission Date: 20210420
  Serious: Yes (Hospitalization, Other)
  Sender: FDA-Public Use
  Company Number: US-AMERICAN REGENT INC-2021000392

PATIENT
  Age: 27 Year
  Sex: Female

DRUGS (1)
  1. INJECTAFER [Suspect]
     Active Substance: FERRIC CARBOXYMALTOSE
     Indication: PRODUCT USED FOR UNKNOWN INDICATION
     Dosage: UNK, FULL IV INFUSION BAG HAD BEEN ADMINISTERED
     Route: 042
     Dates: start: 20191025, end: 20191025

REACTIONS (5)
  - Hypoaesthesia [Unknown]
  - Tachycardia [Unknown]
  - Swollen tongue [Unknown]
  - Flushing [Unknown]
  - Paraesthesia [Unknown]

NARRATIVE: CASE EVENT DATE: 2019
